FAERS Safety Report 8857574 (Version 1)
Quarter: 2012Q4

REPORT INFORMATION
  Report Type: Report from Study
  Country: FR (occurrence: FR)
  Receive Date: 20121024
  Receipt Date: 20121024
  Transmission Date: 20130627
  Serious: Yes (Other)
  Sender: FDA-Public Use
  Company Number: FR-PFIZER INC-2012162176

PATIENT
  Age: 62 Year
  Sex: Female
  Weight: 73 kg

DRUGS (2)
  1. CRIZOTINIB [Suspect]
     Indication: BRONCHIAL CARCINOMA
     Dosage: 250 mg, 2x/day
     Route: 048
     Dates: start: 20120216
  2. DUROGESIC [Concomitant]
     Indication: PAIN
     Dosage: 12 ug, 1x/day
     Route: 062
     Dates: start: 201203, end: 201206

REACTIONS (4)
  - Hepatocellular injury [Recovering/Resolving]
  - Alanine aminotransferase increased [Recovered/Resolved]
  - Aspartate aminotransferase increased [Recovered/Resolved]
  - Alanine aminotransferase increased [Unknown]
